FAERS Safety Report 5581499-4 (Version None)
Quarter: 2008Q1

REPORT INFORMATION
  Report Type: 
  Country: None (occurrence: None)
  Receive Date: 20080104
  Receipt Date: 20071228
  Transmission Date: 20080703
  Serious: Yes (Hospitalization)
  Sender: FDA-Public Use
  Company Number: FR-JNJFOC-20080100125

PATIENT
  Age: 87 Year
  Sex: Male

DRUGS (5)
  1. REMICADE [Suspect]
     Route: 042
  2. REMICADE [Suspect]
     Indication: COLITIS ULCERATIVE
     Route: 042
  3. PURINETHOL [Suspect]
     Indication: COLITIS ULCERATIVE
  4. PENTASA [Concomitant]
     Indication: COLITIS ULCERATIVE
  5. CORTICOIDS [Concomitant]
     Indication: COLITIS ULCERATIVE

REACTIONS (2)
  - INTERSTITIAL LUNG DISEASE [None]
  - PNEUMOCYSTIS JIROVECI INFECTION [None]
